FAERS Safety Report 14973364 (Version 1)
Quarter: 2018Q2

REPORT INFORMATION
  Report Type: Spontaneous
  Country: IT (occurrence: IT)
  Receive Date: 20180605
  Receipt Date: 20180605
  Transmission Date: 20180711
  Serious: Yes (Other)
  Sender: FDA-Public Use
  Company Number: PHHY2018IT014304

PATIENT
  Age: 66 Year
  Sex: Female

DRUGS (3)
  1. PREDNISONE. [Suspect]
     Active Substance: PREDNISONE
     Indication: PLASMA CELL MYELOMA
     Dosage: 60 MG/M2, CYCLIC (ALL THE CYCLES ON DAYS 1 TO 4)
     Route: 065
  2. BORTEZOMIB [Suspect]
     Active Substance: BORTEZOMIB
     Dosage: 1.3 MG/M2, UNK (ON DAYS 1, 4, 8, 11, 22, 25, 29, AND 32 OF CYCLES 1 TO 2; AND ON DAYS 1, 8, 22, AND)
     Route: 065
  3. MELPHALAN. [Suspect]
     Active Substance: MELPHALAN
     Indication: PLASMA CELL MYELOMA
     Dosage: 9 MG/M2, UNK (ALL THE CYCLES ON DAYS 1 TO 4)
     Route: 065

REACTIONS (1)
  - Hepatitis C [Recovered/Resolved]
